FAERS Safety Report 5306399-6 (Version None)
Quarter: 2007Q2

REPORT INFORMATION
  Report Type: 
  Country: None (occurrence: None)
  Receive Date: 20070419
  Receipt Date: 20070412
  Transmission Date: 20071010
  Serious: Yes (Other)
  Sender: FDA-Public Use
  Company Number: 2007SP006875

PATIENT
  Age: 50 Year
  Sex: Male
  Weight: 58 kg

DRUGS (6)
  1. PEG-INTRON [Suspect]
     Indication: HEPATITIS C
     Dosage: 80 MCG; QW; SC
     Route: 058
     Dates: start: 20050725
  2. REBETOL [Suspect]
     Indication: HEPATITIS C
     Dosage: 600 MG; QD;PO
     Route: 048
     Dates: start: 20050725
  3. INDOMETHACIN [Concomitant]
  4. ASPARA K [Concomitant]
  5. RINDERON-VG [Concomitant]
  6. PENTAGIN [Concomitant]

REACTIONS (1)
  - PRIMARY HYPERALDOSTERONISM [None]
